FAERS Safety Report 6131981-6 (Version None)
Quarter: 2009Q1

REPORT INFORMATION
  Report Type: 
  Country: None (occurrence: None)
  Receive Date: 20090325
  Receipt Date: 20090318
  Transmission Date: 20090719
  Serious: Yes (Death)
  Sender: FDA-Public Use
  Company Number: US-GILEAD-2009-0020849

PATIENT
  Sex: Male
  Weight: 50.031 kg

DRUGS (9)
  1. LETAIRIS [Suspect]
     Indication: PULMONARY ARTERIAL HYPERTENSION
     Route: 048
     Dates: start: 20070808, end: 20090311
  2. COUMADIN [Concomitant]
  3. DIGOXIN [Concomitant]
  4. FLOVENT [Concomitant]
  5. SEREVENT [Concomitant]
  6. AZITHROMYCIN [Concomitant]
  7. LASIX [Concomitant]
  8. MINOCYCLINE HCL [Concomitant]
  9. CHILDRENS MULTIVITAMINS [Concomitant]

REACTIONS (2)
  - CARDIO-RESPIRATORY ARREST [None]
  - HAEMOPTYSIS [None]
